FAERS Safety Report 5041234-5 (Version None)
Quarter: 2006Q3

REPORT INFORMATION
  Report Type: 
  Country: None (occurrence: None)
  Receive Date: 20060703
  Receipt Date: 20060627
  Transmission Date: 20061208
  Serious: Yes (Death, Other)
  Sender: FDA-Public Use
  Company Number: ES-GLAXOSMITHKLINE-B0429340A

PATIENT

DRUGS (3)
  1. MELPHALAN [Suspect]
     Indication: STEM CELL TRANSPLANT
     Route: 065
  2. BUSULFAN [Suspect]
     Indication: STEM CELL TRANSPLANT
     Dosage: 16MGK UNKNOWN
     Route: 065
  3. CHEMOTHERAPY [Concomitant]
     Indication: STEM CELL TRANSPLANT
     Route: 065

REACTIONS (1)
  - SYSTEMIC CANDIDA [None]
